FAERS Safety Report 10609188 (Version 3)
Quarter: 2015Q2

REPORT INFORMATION
  Report Type: Spontaneous
  Country: US (occurrence: US)
  Receive Date: 20141126
  Receipt Date: 20150406
  Transmission Date: 20150821
  Serious: Yes (Other)
  Sender: FDA-Public Use
  Company Number: US-AUROBINDO-AUR-APL-2014-12423

PATIENT
  Sex: Female

DRUGS (1)
  1. LEVETIRACTAM [Suspect]
     Active Substance: LEVETIRACETAM
     Indication: EPILEPSY
     Dosage: 4 DF, DAILY
     Route: 048

REACTIONS (2)
  - Partial seizures [Not Recovered/Not Resolved]
  - Drug ineffective [Not Recovered/Not Resolved]
